FAERS Safety Report 5609839-8 (Version None)
Quarter: 2008Q1

REPORT INFORMATION
  Report Type: 
  Country: None (occurrence: None)
  Receive Date: 20080131
  Receipt Date: 20080121
  Transmission Date: 20080703
  Serious: Yes (Hospitalization, Other)
  Sender: FDA-Public Use
  Company Number: JP-PFIZER INC-2008006921

PATIENT
  Age: 37 Year
  Sex: Male

DRUGS (2)
  1. GABAPEN [Suspect]
     Indication: EPILEPSY
     Route: 048
  2. ALEVIATIN [Concomitant]
     Indication: EPILEPSY

REACTIONS (3)
  - BLOOD POTASSIUM INCREASED [None]
  - PANCREATITIS ACUTE [None]
  - PERITONITIS [None]
